FAERS Safety Report 8811160 (Version 1)
Quarter: 2012Q4

REPORT INFORMATION
  Report Type: Spontaneous
  Country: US (occurrence: None)
  Receive Date: 20120924
  Receipt Date: 20120924
  Transmission Date: 20130627
  Serious: Yes (Death, Hospitalization)
  Sender: FDA-Public Use
  Company Number: 2012SGN00413

PATIENT
  Age: 83 Year
  Sex: Female

DRUGS (1)
  1. ADCETRIS [Suspect]
     Indication: CUTANEOUS T-CELL LYMPHOMA
     Dosage: 1.8 mg/kg, q12d
     Dates: start: 20120713, end: 20120713

REACTIONS (3)
  - Staphylococcal bacteraemia [None]
  - Pulmonary embolism [None]
  - Deep vein thrombosis [None]
